FAERS Safety Report 12308901 (Version 1)
Quarter: 2016Q2

REPORT INFORMATION
  Report Type: Spontaneous
  Country: US (occurrence: None)
  Receive Date: 20160426
  Receipt Date: 20160426
  Transmission Date: 20160815
  Serious: Yes (Disabling, Other)
  Sender: FDA-Public Use
  Company Number: None

PATIENT
  Age: 57 Year
  Sex: Female
  Weight: 70.31 kg

DRUGS (7)
  1. VITAMIN D [Concomitant]
     Active Substance: CHOLECALCIFEROL
  2. VITAMIN B COMPLEX [Concomitant]
     Active Substance: CYANOCOBALAMIN\DEXPANTHENOL\NIACINAMIDE\PYRIDOXINE HYDROCHLORIDE\RIBOFLAVIN 5^-PHOSPHATE SODIUM\THIAMINE HYDROCHLORIDE\VITAMIN B COMPLEX
  3. KEPPRA ARMOUR THYROID [Concomitant]
  4. OMEGA 3 [Concomitant]
     Active Substance: OMEGA-3 FATTY ACIDS
  5. LAMOTRIGINE, 25MG [Suspect]
     Active Substance: LAMOTRIGINE
     Indication: GENERALISED TONIC-CLONIC SEIZURE
     Dosage: 2 TABLET(S) TWICE A DAY TAKEN BY MOUTH
     Route: 048
     Dates: start: 20160219, end: 20160402
  6. PROBIOTICS [Concomitant]
     Active Substance: PROBIOTICS NOS
  7. TUMERIC [Concomitant]
     Active Substance: TURMERIC

REACTIONS (10)
  - Hypoaesthesia [None]
  - Rash [None]
  - Gait disturbance [None]
  - Anxiety [None]
  - Paraesthesia [None]
  - Drug withdrawal syndrome [None]
  - Malaise [None]
  - Tremor [None]
  - Muscular weakness [None]
  - Nightmare [None]

NARRATIVE: CASE EVENT DATE: 20160409
